FAERS Safety Report 26110611 (Version 1)
Quarter: 2025Q4

REPORT INFORMATION
  Report Type: Report from Study
  Country: PH (occurrence: PH)
  Receive Date: 20251202
  Receipt Date: 20251202
  Transmission Date: 20260119
  Serious: Yes (Death, Other)
  Sender: ROCHE
  Company Number: PH-ROCHE-10000443394

PATIENT
  Age: 68 Year
  Sex: Female
  Weight: 59 kg

DRUGS (1)
  1. PHESGO [Suspect]
     Active Substance: HYALURONIDASE-ZZXF\PERTUZUMAB\TRASTUZUMAB
     Indication: Product used for unknown indication
     Route: 065
     Dates: start: 20250214

REACTIONS (3)
  - Pneumonia [Recovered/Resolved]
  - Metastases to central nervous system [Unknown]
  - Death [Fatal]

NARRATIVE: CASE EVENT DATE: 20250428
